FAERS Safety Report 24734896 (Version 1)
Quarter: 2024Q4

REPORT INFORMATION
  Report Type: Spontaneous
  Country: PT (occurrence: PT)
  Receive Date: 20241215
  Receipt Date: 20241215
  Transmission Date: 20250115
  Serious: Yes (Other)
  Sender: VIIV
  Company Number: PT-VIIV HEALTHCARE-PT2024EME153518

PATIENT

DRUGS (2)
  1. ABACAVIR SULFATE\DOLUTEGRAVIR SODIUM\LAMIVUDINE [Suspect]
     Active Substance: ABACAVIR SULFATE\DOLUTEGRAVIR SODIUM\LAMIVUDINE
     Indication: HIV infection
     Dosage: UNK
     Dates: start: 2021, end: 202111
  2. DOLUTEGRAVIR SODIUM\LAMIVUDINE [Suspect]
     Active Substance: DOLUTEGRAVIR SODIUM\LAMIVUDINE
     Indication: HIV infection
     Dosage: UNK
     Dates: start: 202111

REACTIONS (4)
  - Acute myocardial infarction [Unknown]
  - Weight abnormal [Unknown]
  - Blood cholesterol increased [Unknown]
  - Blood triglycerides abnormal [Unknown]

NARRATIVE: CASE EVENT DATE: 20220801
